FAERS Safety Report 23627991 (Version 1)
Quarter: 2024Q1

REPORT INFORMATION
  Report Type: Spontaneous
  Country: US (occurrence: None)
  Receive Date: 20240313
  Receipt Date: 20240313
  Transmission Date: 20240410
  Serious: Yes (Hospitalization)
  Sender: FDA-Public Use
  Company Number: None

PATIENT
  Age: 69 Year
  Sex: Male
  Weight: 85.7 kg

DRUGS (10)
  1. PEMBROLIZUMAB [Suspect]
     Active Substance: PEMBROLIZUMAB
     Indication: Lung neoplasm malignant
     Dosage: OTHER FREQUENCY : EVERY 3 WEEKS;?
     Route: 040
     Dates: start: 20231013, end: 20240202
  2. PREDNISONE [Concomitant]
     Active Substance: PREDNISONE
  3. LEVOTHYROXINE [Concomitant]
     Active Substance: LEVOTHYROXINE\LEVOTHYROXINE SODIUM
  4. LISINOPRIL [Concomitant]
     Active Substance: LISINOPRIL
  5. Clinpro Paste [Concomitant]
  6. FARXIGA [Concomitant]
     Active Substance: DAPAGLIFLOZIN PROPANEDIOL
  7. ROSUVASTATIN [Concomitant]
     Active Substance: ROSUVASTATIN
  8. CARVEDILOL [Concomitant]
     Active Substance: CARVEDILOL
  9. XARELTO [Concomitant]
     Active Substance: RIVAROXABAN
  10. VITAMIN E [Concomitant]
     Active Substance: .ALPHA.-TOCOPHEROL

REACTIONS (2)
  - Pneumonitis [None]
  - Pneumonia [None]

NARRATIVE: CASE EVENT DATE: 20240119
